FAERS Safety Report 12641671 (Version 3)
Quarter: 2016Q3

REPORT INFORMATION
  Report Type: Spontaneous
  Country: HU (occurrence: HU)
  Receive Date: 20160810
  Receipt Date: 20160830
  Transmission Date: 20161109
  Serious: Yes (Death, Life-Threatening, Hospitalization, Disabling, Other)
  Sender: FDA-Public Use
  Company Number: HU-PFIZER INC-2016189970

PATIENT
  Age: 73 Year
  Sex: Male

DRUGS (11)
  1. SUTENT [Suspect]
     Active Substance: SUNITINIB MALATE
     Dosage: 37.5 MG, 1X/DAY
     Route: 048
     Dates: start: 20140227
  2. SUTENT [Suspect]
     Active Substance: SUNITINIB MALATE
     Dosage: 50 MG, 1X/DAY (2/1 SCHEMA)
     Route: 048
     Dates: start: 20160121, end: 20160309
  3. SUTENT [Suspect]
     Active Substance: SUNITINIB MALATE
     Indication: RENAL CANCER
     Dosage: 25 MG, 1X/DAY (4/2 SCHEMA)
     Route: 048
     Dates: start: 20131024
  4. MILURIT [Concomitant]
     Active Substance: ALLOPURINOL
     Dosage: 300 MG, 1X
     Route: 048
  5. TRAMADOL. [Concomitant]
     Active Substance: TRAMADOL
     Dosage: 100 MG, 2X
     Route: 048
  6. CLEXANE [Concomitant]
     Active Substance: ENOXAPARIN SODIUM
     Dosage: 0.4 ML, 1X
     Route: 058
  7. SUTENT [Suspect]
     Active Substance: SUNITINIB MALATE
     Dosage: 37.5 MG, 1X/DAY (4/2 SCHEMA)
     Route: 048
     Dates: start: 20160310, end: 20160323
  8. NACL [Concomitant]
     Active Substance: SODIUM CHLORIDE
     Dosage: 2000 ML, UNK
     Route: 042
  9. HUMA-FOLACID [Concomitant]
     Dosage: 3X1
     Route: 048
  10. FRONTIN [Concomitant]
     Active Substance: ALPRAZOLAM
     Dosage: 0.5 MG, 1X
     Route: 048
  11. NEO FERRO FOLGAMMA [Concomitant]
     Dosage: 3X1
     Route: 048

REACTIONS (7)
  - Disease progression [Fatal]
  - Pneumonia [Not Recovered/Not Resolved]
  - Thrombocytopenia [Unknown]
  - Renal cancer [Fatal]
  - Fall [Fatal]
  - Altered state of consciousness [Recovering/Resolving]
  - White blood cell count decreased [Recovered/Resolved]

NARRATIVE: CASE EVENT DATE: 20160324
